FAERS Safety Report 6904473-1 (Version None)
Quarter: 2010Q3

REPORT INFORMATION
  Report Type: 
  Country: None (occurrence: None)
  Receive Date: 20100804
  Receipt Date: 20090527
  Transmission Date: 20110219
  Serious: No
  Sender: FDA-Public Use
  Company Number: US-PFIZER INC-2009220113

PATIENT
  Age: 62 Year
  Sex: Female
  Weight: 86.168 kg

DRUGS (2)
  1. LYRICA [Suspect]
     Indication: FIBROMYALGIA
     Dosage: 25 MG, 3X/DAY
     Route: 048
     Dates: start: 20080523
  2. TYLENOL [Concomitant]
     Dosage: UNK

REACTIONS (3)
  - CYSTITIS [None]
  - MICTURITION DISORDER [None]
  - MICTURITION URGENCY [None]
